FAERS Safety Report 10835599 (Version 1)
Quarter: 2015Q1

REPORT INFORMATION
  Report Type: Spontaneous
  Country: US (occurrence: US)
  Receive Date: 20150219
  Receipt Date: 20150219
  Transmission Date: 20150721
  Serious: No
  Sender: FDA-Public Use
  Company Number: US-ABBVIE-14P-163-1203932-00

PATIENT
  Sex: Female
  Weight: 44.04 kg

DRUGS (2)
  1. HUMIRA [Suspect]
     Active Substance: ADALIMUMAB
     Indication: COLITIS ULCERATIVE
     Dates: start: 20140107, end: 20140107
  2. HUMIRA [Suspect]
     Active Substance: ADALIMUMAB
     Dates: start: 20140121, end: 20140218

REACTIONS (1)
  - Incorrect dose administered [Recovered/Resolved]
